FAERS Safety Report 25537524 (Version 1)
Quarter: 2025Q3

REPORT INFORMATION
  Report Type: Spontaneous
  Country: AR (occurrence: AR)
  Receive Date: 20250710
  Receipt Date: 20250710
  Transmission Date: 20251021
  Serious: Yes (Other)
  Sender: BEIGENE
  Company Number: AR-BEIGENE-BGN-2025-011029

PATIENT

DRUGS (1)
  1. BRUKINSA [Suspect]
     Active Substance: ZANUBRUTINIB
     Indication: Product used for unknown indication

REACTIONS (3)
  - Oedematous pancreatitis [Unknown]
  - Amylase increased [Unknown]
  - Mesenteric lymphadenitis [Unknown]
